FAERS Safety Report 7522582-3 (Version None)
Quarter: 2011Q2

REPORT INFORMATION
  Report Type: 
  Country: None (occurrence: None)
  Receive Date: 20110603
  Receipt Date: 20110527
  Transmission Date: 20111010
  Serious: Yes (Hospitalization)
  Sender: FDA-Public Use
  Company Number: AU-ROCHE-779739

PATIENT
  Sex: Female

DRUGS (1)
  1. AVASTIN [Suspect]
     Route: 065
     Dates: start: 20070724

REACTIONS (1)
  - INTERVERTEBRAL DISC PROTRUSION [None]
